FAERS Safety Report 5655217 (Version 6)
Quarter: 2015Q2

REPORT INFORMATION
  Report Type: Spontaneous
  Country: PL (occurrence: PL)
  Receive Date: 20041029
  Receipt Date: 20150618
  Transmission Date: 20150821
  Serious: Yes (Death, Life-Threatening, Hospitalization, Other)
  Sender: FDA-Public Use
  Company Number: PL-ROCHE-383789

PATIENT
  Age: 57 Year
  Sex: Male
  Weight: 85 kg

DRUGS (14)
  1. FUROSEMIDE. [Concomitant]
     Active Substance: FUROSEMIDE
     Dosage: DOSE REPORTED AS 1 - 1 - 0 TBLET?LONG LASTING TREATMENT
     Route: 065
  2. CYMEVENE [Suspect]
     Active Substance: GANCICLOVIR
     Indication: CYTOMEGALOVIRUS INFECTION
     Route: 042
     Dates: start: 20041015, end: 20041015
  3. ENCORTON [Suspect]
     Active Substance: PREDNISONE
     Indication: PROPHYLAXIS AGAINST TRANSPLANT REJECTION
     Dosage: DOSE REPORTED AS 1 X 10MG.?TREATMENT WITHDRAWN DUE TO POST-TRANSPLANT DIABETES MELLITUS
     Route: 065
     Dates: start: 20030414, end: 20041012
  4. CELLCEPT [Suspect]
     Active Substance: MYCOPHENOLATE MOFETIL\MYCOPHENOLATE MOFETIL HYDROCHLORIDE
     Indication: PROPHYLAXIS AGAINST TRANSPLANT REJECTION
     Dosage: DISCONTINUED 1 OR 2 DAYS BEFORE RECEIVING GANCICLOVIR
     Route: 065
     Dates: start: 20030827, end: 200410
  5. PROGRAF [Suspect]
     Active Substance: TACROLIMUS\TACROLIMUS ANHYDROUS
     Indication: TRANSPLANT REJECTION
     Dosage: 4 MG IN THE MORNING AND 3 MG IN THE EVENING.  TACROLIMUS LEVEL (10.5 NG/ML)
     Route: 048
  6. IMURAN [Suspect]
     Active Substance: AZATHIOPRINE
     Indication: TRANSPLANT REJECTION
     Route: 048
     Dates: start: 20030409, end: 20041015
  7. AMLODIPINE [Concomitant]
     Active Substance: AMLODIPINE BESYLATE
     Dosage: DOSE REPORTED AS  1 X 10MG?LONG LASTING TREATMENT
     Route: 065
  8. ZOCOR [Concomitant]
     Active Substance: SIMVASTATIN
     Dosage: DOSE REPORTED A 1 X 200MG?LONG LASTING TREATMENT
     Route: 065
  9. OMEPRAZOLE. [Concomitant]
     Active Substance: OMEPRAZOLE
     Dosage: DOSE REPORTED AS 2 X 20MG
     Route: 065
  10. CELLCEPT [Suspect]
     Active Substance: MYCOPHENOLATE MOFETIL\MYCOPHENOLATE MOFETIL HYDROCHLORIDE
     Route: 065
  11. POLPRESSIN [Concomitant]
     Dosage: DOSE REPORTED A 3 X 5MG?LONG LASTING TREATMENT
     Route: 065
  12. NEORAL [Concomitant]
     Active Substance: CYCLOSPORINE
     Route: 065
  13. SOLU-MEDROL [Suspect]
     Active Substance: METHYLPREDNISOLONE SODIUM SUCCINATE
     Indication: TRANSPLANT REJECTION
     Dosage: GIVEN AS PULSE THERAPY OF 3 X 0.5MG
     Route: 042
     Dates: start: 20041013, end: 20041015
  14. ISOPTIN SR [Concomitant]
     Active Substance: VERAPAMIL HYDROCHLORIDE
     Dosage: DOSE REPORTED AS 1 X 2MG?LONG LASTING TREATMENT
     Route: 065

REACTIONS (19)
  - Respiratory arrest [Fatal]
  - Myocardial ischaemia [Unknown]
  - Ill-defined disorder [Unknown]
  - Circulatory collapse [Fatal]
  - Cardiopulmonary failure [Unknown]
  - Hepatic steatosis [Unknown]
  - Pancytopenia [Fatal]
  - Disseminated intravascular coagulation [Unknown]
  - General physical health deterioration [Unknown]
  - Cytomegalovirus infection [Unknown]
  - Restlessness [Unknown]
  - Kussmaul respiration [Unknown]
  - Lactic acidosis [Fatal]
  - Toxicity to various agents [Fatal]
  - Nervous system disorder [Unknown]
  - Multi-organ failure [Fatal]
  - Cardiac arrest [Fatal]
  - Bone marrow failure [Unknown]
  - Bronchopneumonia [Unknown]

NARRATIVE: CASE EVENT DATE: 200410
